FAERS Safety Report 4793819-9 (Version None)
Quarter: 2005Q4

REPORT INFORMATION
  Report Type: 
  Country: None (occurrence: None)
  Receive Date: 20051006
  Receipt Date: 20051006
  Transmission Date: 20060501
  Serious: Yes (Hospitalization)
  Sender: FDA-Public Use
  Company Number: None

PATIENT
  Age: 76 Year
  Sex: Female

DRUGS (1)
  1. WARFARIN      1MG [Suspect]
     Indication: ATRIAL FIBRILLATION
     Dosage: 1MG, 2MG     5 DAY; 2 DAYS WEEK   PO
     Route: 048

REACTIONS (2)
  - INTERNATIONAL NORMALISED RATIO INCREASED [None]
  - PYREXIA [None]
